FAERS Safety Report 7797863-9 (Version None)
Quarter: 2011Q4

REPORT INFORMATION
  Report Type: 
  Country: None (occurrence: None)
  Receive Date: 20111004
  Receipt Date: 20111004
  Transmission Date: 20120403
  Serious: Yes (Hospitalization)
  Sender: FDA-Public Use
  Company Number: None

PATIENT
  Age: 55 Year
  Sex: Female

DRUGS (2)
  1. CEFEPIME [Suspect]
     Dosage: 1 IV
     Route: 042
     Dates: start: 20110420, end: 20110423
  2. CEPHALEXIN [Suspect]
     Dosage: 500 MG QID PO
     Route: 048
     Dates: start: 20110427, end: 20110430

REACTIONS (1)
  - HAEMOLYTIC ANAEMIA [None]
